FAERS Safety Report 10488472 (Version 1)
Quarter: 2014Q3

REPORT INFORMATION
  Report Type: Spontaneous
  Country: US (occurrence: None)
  Receive Date: 20140815
  Receipt Date: 20140815
  Transmission Date: 20150326
  Serious: Yes (Other)
  Sender: FDA-Public Use
  Company Number: ADR-2013-01583

PATIENT
  Sex: Female

DRUGS (1)
  1. BACLOFEN INTRATHECAL [Suspect]
     Active Substance: BACLOFEN
     Indication: MUSCLE SPASTICITY

REACTIONS (11)
  - Transient ischaemic attack [None]
  - Dyspnoea [None]
  - Nausea [None]
  - Mental impairment [None]
  - Muscle spasticity [None]
  - Overdose [None]
  - Malaise [None]
  - Pyrexia [None]
  - Headache [None]
  - Fall [None]
  - Muscle spasms [None]
